FAERS Safety Report 23673099 (Version 3)
Quarter: 2024Q2

REPORT INFORMATION
  Report Type: Report from Study
  Country: GB (occurrence: GB)
  Receive Date: 20240326
  Receipt Date: 20240506
  Transmission Date: 20240716
  Serious: Yes (Other)
  Sender: FDA-Public Use
  Company Number: GB-002147023-NVSC2024GB062055

PATIENT
  Sex: Female

DRUGS (2)
  1. MAYZENT [Suspect]
     Active Substance: SIPONIMOD
     Indication: Secondary progressive multiple sclerosis
     Dosage: UNK, QD (TITRATION DOSES)
     Route: 048
     Dates: start: 20240222
  2. MAYZENT [Suspect]
     Active Substance: SIPONIMOD
     Dosage: UNK, (MAINTENANCE 2 MG TABLETS)
     Route: 048

REACTIONS (4)
  - Cataract [Not Recovered/Not Resolved]
  - Visual impairment [Not Recovered/Not Resolved]
  - Gait disturbance [Recovered/Resolved]
  - Eye discharge [Not Recovered/Not Resolved]
